FAERS Safety Report 5009591-3 (Version None)
Quarter: 2006Q2

REPORT INFORMATION
  Report Type: 
  Country: None (occurrence: None)
  Receive Date: 20060524
  Receipt Date: 20060120
  Transmission Date: 20061013
  Serious: Yes (Other)
  Sender: FDA-Public Use
  Company Number: 2006AP02306

PATIENT
  Sex: Male

DRUGS (2)
  1. ZOLADEX [Suspect]
     Route: 058
     Dates: end: 20051201
  2. WARFARIN SODIUM [Concomitant]
     Indication: CARDIAC DISORDER
     Dates: end: 20051201

REACTIONS (1)
  - HAEMOGLOBIN DECREASED [None]
